FAERS Safety Report 17808627 (Version 1)
Quarter: 2020Q2

REPORT INFORMATION
  Report Type: Report from Study
  Country: BE (occurrence: BE)
  Receive Date: 20200520
  Receipt Date: 20200520
  Transmission Date: 20200714
  Serious: Yes (Hospitalization)
  Sender: FDA-Public Use
  Company Number: BE-JNJFOC-20200513276

PATIENT
  Age: 68 Year
  Sex: Female
  Weight: 57.2 kg

DRUGS (11)
  1. LASIX [Concomitant]
     Active Substance: FUROSEMIDE
     Indication: CONSTIPATION
  2. INUVAIR [Concomitant]
     Active Substance: BECLOMETHASONE DIPROPIONATE\FORMOTEROL FUMARATE
     Indication: CHRONIC OBSTRUCTIVE PULMONARY DISEASE
  3. VITAMIN D                          /00107901/ [Concomitant]
     Active Substance: ERGOCALCIFEROL
     Indication: PROPHYLAXIS
     Dates: start: 20191017
  4. ASAFLOW [Concomitant]
     Active Substance: ASPIRIN
     Indication: CHRONIC OBSTRUCTIVE PULMONARY DISEASE
     Dates: end: 20200512
  5. ARANESP [Concomitant]
     Active Substance: DARBEPOETIN ALFA
     Indication: ANAEMIA PROPHYLAXIS
     Dates: start: 20200116, end: 20200401
  6. LYSANXIA [Concomitant]
     Active Substance: PRAZEPAM
     Indication: ANXIETY
     Dates: start: 20191121
  7. MEDROL [Concomitant]
     Active Substance: METHYLPREDNISOLONE
     Indication: PROPHYLAXIS
  8. MAGNECAPS MUSCLES [Concomitant]
     Indication: MAGNESIUM DEFICIENCY
     Dates: start: 20191121
  9. PARACETAMOL [Concomitant]
     Active Substance: ACETAMINOPHEN
     Indication: ABDOMINAL PAIN
     Dates: start: 20191017
  10. ERDAFITINIB. [Suspect]
     Active Substance: ERDAFITINIB
     Indication: NEOPLASM
     Dosage: KIT NUMBER: 2106082, 9219519
     Route: 048
     Dates: start: 20200414
  11. MEDROL [Concomitant]
     Active Substance: METHYLPREDNISOLONE
     Indication: TUMOUR ASSOCIATED FEVER
     Dates: start: 20200323

REACTIONS (2)
  - Anaemia [Recovering/Resolving]
  - Gastric haemorrhage [Not Recovered/Not Resolved]

NARRATIVE: CASE EVENT DATE: 20200509
